FAERS Safety Report 19855813 (Version 1)
Quarter: 2021Q3

REPORT INFORMATION
  Report Type: Spontaneous
  Country: US (occurrence: US)
  Receive Date: 20210916
  Receipt Date: 20210916
  Transmission Date: 20211014
  Serious: Yes (Other)
  Sender: FDA-Public Use
  Company Number: None

PATIENT
  Age: 33 Year
  Sex: Female
  Weight: 77.56 kg

DRUGS (1)
  1. GENERESS FE [Suspect]
     Active Substance: ETHINYL ESTRADIOL\NORETHINDRONE

REACTIONS (2)
  - Product substitution issue [None]
  - Mood altered [None]

NARRATIVE: CASE EVENT DATE: 20160408
